FAERS Safety Report 16239887 (Version 1)
Quarter: 2019Q2

REPORT INFORMATION
  Report Type: Spontaneous
  Country: US (occurrence: US)
  Receive Date: 20190425
  Receipt Date: 20190425
  Transmission Date: 20190711
  Serious: Yes (Other)
  Sender: FDA-Public Use
  Company Number: US-TEVA-2019-US-1042419

PATIENT
  Sex: Female
  Weight: 50.85 kg

DRUGS (11)
  1. ENALAPRIL [Concomitant]
     Active Substance: ENALAPRIL
     Dosage: DOSE 20 MG
     Route: 065
  2. IBUPROFEN. [Concomitant]
     Active Substance: IBUPROFEN
     Route: 065
  3. MYRBETRIQ [Concomitant]
     Active Substance: MIRABEGRON
     Indication: HYPERTONIC BLADDER
     Route: 065
  4. TROSPIUM CHLORIDE. [Suspect]
     Active Substance: TROSPIUM CHLORIDE
     Indication: HYPERTONIC BLADDER
  5. TOVIAZ [Concomitant]
     Active Substance: FESOTERODINE FUMARATE
     Indication: HYPERTONIC BLADDER
     Dosage: 8 MILLIGRAM DAILY;
     Route: 065
  6. LEVOTHYROXINE. [Concomitant]
     Active Substance: LEVOTHYROXINE
     Route: 065
  7. VITAMIN D2 [Concomitant]
     Active Substance: ERGOCALCIFEROL
     Route: 065
  8. CENTRUM SILVER ADULT [Concomitant]
     Route: 065
  9. VITAMIN E [Concomitant]
     Active Substance: .ALPHA.-TOCOPHEROL
     Route: 065
  10. LEVOPRO [Concomitant]
     Route: 065
  11. TROSPIUM CHLORIDE. [Suspect]
     Active Substance: TROSPIUM CHLORIDE
     Indication: BLADDER DISORDER
     Route: 065

REACTIONS (14)
  - Dysphagia [Unknown]
  - Dysphonia [Unknown]
  - Body temperature increased [Unknown]
  - Dermatitis contact [Unknown]
  - Dermatitis atopic [Unknown]
  - Oesophageal obstruction [Unknown]
  - Palpitations [Unknown]
  - Feeling hot [Unknown]
  - Aptyalism [Unknown]
  - Hypersensitivity [Unknown]
  - Disorientation [Unknown]
  - Mastication disorder [Unknown]
  - Hypertension [Unknown]
  - Rash [Recovered/Resolved]
